FAERS Safety Report 23610611 (Version 1)
Quarter: 2024Q1

REPORT INFORMATION
  Report Type: Spontaneous
  Country: US (occurrence: None)
  Receive Date: 20240307
  Receipt Date: 20240307
  Transmission Date: 20240410
  Serious: No
  Sender: FDA-Public Use
  Company Number: None

PATIENT
  Age: 28 Year
  Sex: Female

DRUGS (1)
  1. CYANOCOBALAMIN\SEMAGLUTIDE [Suspect]
     Active Substance: CYANOCOBALAMIN\SEMAGLUTIDE
     Dosage: 0.25 MG WEEKLY SUBCUTANEOUS?
     Route: 058

REACTIONS (2)
  - Therapy interrupted [None]
  - Product prescribing issue [None]

NARRATIVE: CASE EVENT DATE: 20240305
